FAERS Safety Report 8183704-7 (Version None)
Quarter: 2012Q1

REPORT INFORMATION
  Report Type: 
  Country: None (occurrence: None)
  Receive Date: 20120305
  Receipt Date: 20120228
  Transmission Date: 20120608
  Serious: Yes (Other)
  Sender: FDA-Public Use
  Company Number: PHHY2012BR018550

PATIENT
  Sex: Female

DRUGS (3)
  1. DIOVAN [Suspect]
     Indication: HYPERTENSION
     Dosage: 320 MG, DAILY
  2. DIOVAN [Suspect]
     Dosage: 80 MG, UNK
  3. FORMOTEROL FUMARATE [Concomitant]
     Indication: LUNG DISORDER
     Dosage: 1 DF (12/400 MCG), UNK

REACTIONS (1)
  - INFARCTION [None]
